FAERS Safety Report 7822364-9 (Version None)
Quarter: 2011Q4

REPORT INFORMATION
  Report Type: 
  Country: None (occurrence: None)
  Receive Date: 20111018
  Receipt Date: 20111012
  Transmission Date: 20120403
  Serious: Yes (Life-Threatening, Hospitalization)
  Sender: FDA-Public Use
  Company Number: NO-CELGENEUS-122-CCAZA-11101397

PATIENT
  Sex: Male

DRUGS (3)
  1. AZACITIDINE [Suspect]
     Dosage: 75 MICROGRAM/SQ. METER
     Route: 065
     Dates: start: 20110822
  2. ONDANSETRON [Concomitant]
     Indication: PROPHYLAXIS
     Route: 065
     Dates: start: 20110822
  3. NEUPOGEN [Concomitant]
     Indication: NEUTROPENIA
     Dosage: 300 MICROGRAM
     Route: 065
     Dates: start: 20080101, end: 20111010

REACTIONS (2)
  - FEBRILE NEUTROPENIA [None]
  - BACTERIAL SEPSIS [None]
